FAERS Safety Report 19476600 (Version 1)
Quarter: 2021Q2

REPORT INFORMATION
  Report Type: Spontaneous
  Country: PL (occurrence: PL)
  Receive Date: 20210630
  Receipt Date: 20210630
  Transmission Date: 20210717
  Serious: Yes (Other)
  Sender: FDA-Public Use
  Company Number: PL-LUPIN PHARMACEUTICALS INC.-2021-10460

PATIENT
  Age: 13 Year
  Sex: Male

DRUGS (6)
  1. METHYLPREDNISOLONE. [Suspect]
     Active Substance: METHYLPREDNISOLONE
     Indication: PRIMARY IMMUNODEFICIENCY SYNDROME
     Dosage: 30 MILLIGRAM/KILOGRAM, PULSES FOR 3 DAYS
     Route: 042
  2. PREDNISONE. [Suspect]
     Active Substance: PREDNISONE
     Indication: PRIMARY IMMUNODEFICIENCY SYNDROME
     Dosage: 2 MILLIGRAM/KILOGRAM, INITIAL DOSE
     Route: 065
  3. METHYLPREDNISOLONE. [Suspect]
     Active Substance: METHYLPREDNISOLONE
     Indication: INTERSTITIAL LUNG DISEASE
  4. PREDNISONE. [Suspect]
     Active Substance: PREDNISONE
     Indication: INTERSTITIAL LUNG DISEASE
     Dosage: 0.4 MILLIGRAM/KILOGRAM, MAINTENANCE DOSE
     Route: 065
  5. AZATHIOPRINE. [Concomitant]
     Active Substance: AZATHIOPRINE
     Indication: PRIMARY IMMUNODEFICIENCY SYNDROME
     Dosage: UNK, 2.0?3.5 MG/KG
     Route: 065
  6. AZATHIOPRINE. [Concomitant]
     Active Substance: AZATHIOPRINE
     Indication: INTERSTITIAL LUNG DISEASE

REACTIONS (3)
  - Osteoporosis [Unknown]
  - Cushing^s syndrome [Unknown]
  - Spinal compression fracture [Unknown]
